FAERS Safety Report 7420161-X (Version None)
Quarter: 2011Q2

REPORT INFORMATION
  Report Type: 
  Country: None (occurrence: None)
  Receive Date: 20110418
  Receipt Date: 20110412
  Transmission Date: 20111010
  Serious: Yes (Other)
  Sender: FDA-Public Use
  Company Number: US-PFIZER INC-2011068296

PATIENT
  Sex: Female

DRUGS (1)
  1. GLUCOTROL XL [Suspect]
     Dosage: 10 MG, UNK
     Route: 048

REACTIONS (6)
  - ASTHENIA [None]
  - ABDOMINAL PAIN UPPER [None]
  - LOCAL SWELLING [None]
  - SWELLING [None]
  - GASTRIC DISORDER [None]
  - GASTROINTESTINAL INJURY [None]
